FAERS Safety Report 6679042-1 (Version None)
Quarter: 2010Q2

REPORT INFORMATION
  Report Type: 
  Country: None (occurrence: None)
  Receive Date: 20100407
  Receipt Date: 20100325
  Transmission Date: 20101027
  Serious: Yes (Hospitalization)
  Sender: FDA-Public Use
  Company Number: 2010-00383

PATIENT
  Age: 80 Year
  Sex: Female

DRUGS (4)
  1. LISINOPRIL [Suspect]
     Indication: HYPERTENSION
     Dosage: 2.5 MG (1 IN 1 D), ORAL
     Route: 048
     Dates: start: 20020718, end: 20100315
  2. BENDROFLUAZIDE (BENDROFLUMETHIAZIDE) [Suspect]
     Indication: HYPERTENSION
     Dosage: 2.5 MG (1 IN 1 D), ORAL
     Route: 048
     Dates: start: 19991108, end: 20100315
  3. CODEINE PHOSPHATE+PARACETAMOL (CO-CODAMOL) [Concomitant]
  4. CARBOMER+CARBOMER 980 (VISCOTEARS) [Concomitant]

REACTIONS (3)
  - DIARRHOEA [None]
  - HYPOPHAGIA [None]
  - RENAL FAILURE ACUTE [None]
